FAERS Safety Report 10688269 (Version 1)
Quarter: 2015Q1

REPORT INFORMATION
  Report Type: Spontaneous
  Country: FR (occurrence: FR)
  Receive Date: 20150102
  Receipt Date: 20150102
  Transmission Date: 20150720
  Serious: Yes (Other)
  Sender: FDA-Public Use
  Company Number: PHHY2014FR168395

PATIENT
  Age: 59 Year
  Sex: Male

DRUGS (1)
  1. EXFORGE [Suspect]
     Active Substance: AMLODIPINE BESYLATE\VALSARTAN
     Indication: PRODUCT USED FOR UNKNOWN INDICATION
     Dosage: 0.5 DF, ONCE/SINGLE (HALF DF OF 10 MG AMLODIPINE /160 MG VALSARTAN)
     Route: 048
     Dates: start: 20141110, end: 20141110

REACTIONS (8)
  - Muscle rigidity [Recovered/Resolved]
  - Hypertension [Recovered/Resolved]
  - Medication error [Recovered/Resolved]
  - Movement disorder [Recovered/Resolved]
  - Sweat gland disorder [Recovered/Resolved]
  - Wrong drug administered [Recovered/Resolved]
  - Drug prescribing error [Recovered/Resolved]
  - Pallor [Recovered/Resolved]

NARRATIVE: CASE EVENT DATE: 20141110
